FAERS Safety Report 24040781 (Version 3)
Quarter: 2024Q4

REPORT INFORMATION
  Report Type: Report from Study
  Country: US (occurrence: US)
  Receive Date: 20240702
  Receipt Date: 20241001
  Transmission Date: 20250114
  Serious: Yes (Death)
  Sender: EMD SERONO INC
  Company Number: US-Merck Healthcare KGaA-2024035590

PATIENT
  Age: 48 Year
  Sex: Female
  Weight: 52.16 kg

DRUGS (5)
  1. REBIF [Suspect]
     Active Substance: INTERFERON BETA-1A
     Indication: Product used for unknown indication
     Dates: start: 2007, end: 2017
  2. REBIF [Suspect]
     Active Substance: INTERFERON BETA-1A
     Dates: start: 202110, end: 2024
  3. SYNTHROID [Concomitant]
     Active Substance: LEVOTHYROXINE SODIUM
     Indication: Product used for unknown indication
  4. LISINOPRIL [Concomitant]
     Active Substance: LISINOPRIL
     Indication: Product used for unknown indication
  5. PREDNISONE [Concomitant]
     Active Substance: PREDNISONE
     Indication: Product used for unknown indication

REACTIONS (2)
  - Malignant melanoma of sites other than skin [Fatal]
  - Metastases to stomach [Fatal]

NARRATIVE: CASE EVENT DATE: 20210101
